FAERS Safety Report 5000847-7 (Version None)
Quarter: 2006Q2

REPORT INFORMATION
  Report Type: 
  Country: None (occurrence: None)
  Receive Date: 20060512
  Receipt Date: 20051003
  Transmission Date: 20061013
  Serious: Yes (Hospitalization, Other)
  Sender: FDA-Public Use
  Company Number: US-MERCK-0510USA02604

PATIENT
  Age: 59 Year
  Sex: Male
  Weight: 94 kg

DRUGS (1)
  1. VIOXX [Suspect]
     Indication: ARTHRITIS
     Route: 048
     Dates: start: 19990927, end: 20040930

REACTIONS (15)
  - ACUTE MYOCARDIAL INFARCTION [None]
  - ARTERIOSCLEROSIS CORONARY ARTERY [None]
  - BRONCHITIS [None]
  - CARDIOVASCULAR DISORDER [None]
  - CHEST PAIN [None]
  - CORONARY ARTERY DISEASE [None]
  - DEHYDRATION [None]
  - EMBOLISM [None]
  - EPISTAXIS [None]
  - ILIAC ARTERY EMBOLISM [None]
  - INTERMITTENT CLAUDICATION [None]
  - MYOCARDIAL INFARCTION [None]
  - PERIPHERAL ARTERIAL OCCLUSIVE DISEASE [None]
  - PNEUMONIA [None]
  - THROMBOSIS [None]
